FAERS Safety Report 10564398 (Version 2)
Quarter: 2015Q2

REPORT INFORMATION
  Report Type: Report from Study
  Country: US (occurrence: US)
  Receive Date: 20141104
  Receipt Date: 20150416
  Transmission Date: 20150821
  Serious: Yes (Hospitalization, Other)
  Sender: FDA-Public Use
  Company Number: US-ABBVIE-14K-163-1301841-00

PATIENT
  Sex: Female

DRUGS (2)
  1. HUMIRA [Suspect]
     Active Substance: ADALIMUMAB
     Indication: CROHN^S DISEASE
     Route: 065
     Dates: start: 2010
  2. HUMIRA [Suspect]
     Active Substance: ADALIMUMAB
     Route: 065
     Dates: end: 20150115

REACTIONS (5)
  - Systemic lupus erythematosus [Not Recovered/Not Resolved]
  - Crohn^s disease [Unknown]
  - Joint swelling [Recovered/Resolved]
  - Loss of consciousness [Unknown]
  - Stress [Unknown]

NARRATIVE: CASE EVENT DATE: 2013
